FAERS Safety Report 24813761 (Version 5)
Quarter: 2025Q1

REPORT INFORMATION
  Report Type: Report from Study
  Country: CA (occurrence: CA)
  Receive Date: 20250107
  Receipt Date: 20250225
  Transmission Date: 20250408
  Serious: Yes (Other)
  Sender: TAKEDA
  Company Number: CA-TAKEDA-2022TUS095734

PATIENT
  Age: 35 Year
  Sex: Female

DRUGS (8)
  1. VEDOLIZUMAB [Suspect]
     Active Substance: VEDOLIZUMAB
     Indication: Colitis ulcerative
  2. VEDOLIZUMAB [Suspect]
     Active Substance: VEDOLIZUMAB
     Dosage: 300 MILLIGRAM, Q4WEEKS
     Dates: start: 20220202
  3. VEDOLIZUMAB [Suspect]
     Active Substance: VEDOLIZUMAB
     Dosage: 300 MILLIGRAM, Q4WEEKS
  4. VEDOLIZUMAB [Suspect]
     Active Substance: VEDOLIZUMAB
     Dosage: 300 MILLIGRAM, Q4WEEKS
  5. VEDOLIZUMAB [Suspect]
     Active Substance: VEDOLIZUMAB
     Dosage: 300 MILLIGRAM, Q4WEEKS
  6. CORTISONE [Concomitant]
     Active Substance: CORTISONE
  7. PREDNISONE [Concomitant]
     Active Substance: PREDNISONE
  8. ELAVIL [Concomitant]
     Active Substance: AMITRIPTYLINE HYDROCHLORIDE

REACTIONS (5)
  - Clostridium difficile infection [Not Recovered/Not Resolved]
  - COVID-19 [Unknown]
  - Sinusitis bacterial [Not Recovered/Not Resolved]
  - Off label use [Unknown]
  - Ear infection [Not Recovered/Not Resolved]

NARRATIVE: CASE EVENT DATE: 20220202
